FAERS Safety Report 14874070 (Version 3)
Quarter: 2018Q2

REPORT INFORMATION
  Report Type: Spontaneous
  Country: ES (occurrence: ES)
  Receive Date: 20180510
  Receipt Date: 20180611
  Transmission Date: 20180711
  Serious: Yes (Life-Threatening, Hospitalization)
  Sender: FDA-Public Use
  Company Number: ES-MYLANLABS-2018M1029646

PATIENT
  Age: 69 Year
  Sex: Female

DRUGS (7)
  1. METFORMIN [Suspect]
     Active Substance: METFORMIN HYDROCHLORIDE
     Indication: DIABETES MELLITUS
     Dosage: UNK
  2. RANITIDINA                         /00550801/ [Concomitant]
     Indication: PRODUCT USED FOR UNKNOWN INDICATION
     Dosage: UNK
  3. ACETAZOLAMIDA [Suspect]
     Active Substance: ACETAZOLAMIDE
     Indication: GLAUCOMA
     Dosage: UNK
     Route: 048
     Dates: start: 20180127, end: 20180205
  4. SITAGLIPTINA                       /05710001/ [Suspect]
     Active Substance: SITAGLIPTIN
     Indication: PRODUCT USED FOR UNKNOWN INDICATION
     Dosage: UNK
  5. MANITOL [Suspect]
     Active Substance: MANNITOL
     Indication: PRODUCT USED FOR UNKNOWN INDICATION
     Dosage: DOS BOLOS DE MANITOL
  6. SEVOFLURANO PIRAMAL [Suspect]
     Active Substance: SEVOFLURANE
     Indication: GENERAL ANAESTHESIA
     Dosage: 1,5 CAM
     Route: 055
     Dates: start: 20180205, end: 20180205
  7. ATORVASTATINA                      /01326101/ [Concomitant]
     Indication: PRODUCT USED FOR UNKNOWN INDICATION
     Dosage: UNK

REACTIONS (8)
  - Arrhythmia [Unknown]
  - Cardio-respiratory arrest [Not Recovered/Not Resolved]
  - Coma [Unknown]
  - Metabolic acidosis [Not Recovered/Not Resolved]
  - Malaise [Unknown]
  - Cyanosis [Unknown]
  - Unresponsive to stimuli [Unknown]
  - Nausea [Unknown]

NARRATIVE: CASE EVENT DATE: 20180206
